FAERS Safety Report 21244552 (Version 1)
Quarter: 2022Q3

REPORT INFORMATION
  Report Type: Spontaneous
  Country: US (occurrence: US)
  Receive Date: 20220823
  Receipt Date: 20220823
  Transmission Date: 20221026
  Serious: Yes (Other)
  Sender: FDA-Public Use
  Company Number: US-MYLANLABS-2022M1087768

PATIENT
  Age: 12 Year
  Sex: Female

DRUGS (12)
  1. DIPHENHYDRAMINE [Suspect]
     Active Substance: DIPHENHYDRAMINE
     Indication: Rash pruritic
     Dosage: 25 MILLIGRAM (EVENING DOSE)
     Route: 065
  2. DIPHENHYDRAMINE [Suspect]
     Active Substance: DIPHENHYDRAMINE
     Indication: Rash maculo-papular
     Dosage: 50 MILLIGRAM, Q4H (EVERY 4 HOURS AS NEEDED)
     Route: 065
  3. AVENA SATIVA POLLEN [Suspect]
     Active Substance: AVENA SATIVA POLLEN
     Indication: Rash pruritic
     Dosage: UNK
     Route: 065
  4. AVENA SATIVA POLLEN [Suspect]
     Active Substance: AVENA SATIVA POLLEN
     Indication: Rash maculo-papular
  5. ALOE VERA LEAF [Suspect]
     Active Substance: ALOE VERA LEAF
     Indication: Rash pruritic
     Dosage: UNK
     Route: 065
  6. ALOE VERA LEAF [Suspect]
     Active Substance: ALOE VERA LEAF
     Indication: Rash maculo-papular
  7. ELEXACAFTOR\IVACAFTOR\TEZACAFTOR [Concomitant]
     Active Substance: ELEXACAFTOR\IVACAFTOR\TEZACAFTOR
     Indication: Cystic fibrosis
     Dosage: 2 DOSAGE FORM, QD (2 TABLETS EVERY MORNING)
     Route: 065
  8. IVACAFTOR [Concomitant]
     Active Substance: IVACAFTOR
     Indication: Cystic fibrosis
     Dosage: 150 MILLIGRAM, QD (ONE TABLET EVERY EVENING)
     Route: 065
  9. FEXOFENADINE [Concomitant]
     Active Substance: FEXOFENADINE HYDROCHLORIDE
     Indication: Rash pruritic
     Dosage: 180 MILLIGRAM, QD
     Route: 065
  10. FEXOFENADINE [Concomitant]
     Active Substance: FEXOFENADINE HYDROCHLORIDE
     Indication: Rash maculo-papular
  11. PREDNISONE [Concomitant]
     Active Substance: PREDNISONE
     Indication: Rash pruritic
     Dosage: 60 MILLIGRAM, QD
     Route: 065
  12. PREDNISONE [Concomitant]
     Active Substance: PREDNISONE
     Indication: Rash maculo-papular

REACTIONS (1)
  - Drug ineffective [Unknown]
